FAERS Safety Report 5372616-X (Version None)
Quarter: 2007Q2

REPORT INFORMATION
  Report Type: 
  Country: None (occurrence: None)
  Receive Date: 20070626
  Receipt Date: 20070614
  Transmission Date: 20071010
  Serious: Yes (Other)
  Sender: FDA-Public Use
  Company Number: GXKR2006DE08679

PATIENT
  Age: 20 Year
  Sex: Female

DRUGS (3)
  1. SERTRALINE (NGX)(SERTRALINE) FILM-COATED TABLET, 100MG [Suspect]
     Indication: DEPRESSION
     Dosage: SEE IMAGE
     Route: 048
     Dates: start: 20060415, end: 20060721
  2. SERTRALINE (NGX)(SERTRALINE) FILM-COATED TABLET, 100MG [Suspect]
     Indication: DEPRESSION
     Dosage: SEE IMAGE
     Route: 048
     Dates: start: 20060721, end: 20060721
  3. SERTRALINE (NGX)(SERTRALINE) FILM-COATED TABLET, 100MG [Suspect]
     Indication: DEPRESSION
     Dosage: SEE IMAGE
     Route: 048
     Dates: start: 20060722, end: 20060723

REACTIONS (4)
  - CAESAREAN SECTION [None]
  - DRUG EXPOSURE DURING PREGNANCY [None]
  - HYPEREMESIS GRAVIDARUM [None]
  - PREMATURE LABOUR [None]
